FAERS Safety Report 7438129-6 (Version None)
Quarter: 2011Q2

REPORT INFORMATION
  Report Type: 
  Country: None (occurrence: None)
  Receive Date: 20110426
  Receipt Date: 20110419
  Transmission Date: 20111010
  Serious: Yes (Congenital Anomaly, Other)
  Sender: FDA-Public Use
  Company Number: FR-PFIZER INC-2011085188

PATIENT
  Sex: Male
  Weight: 3 kg

DRUGS (2)
  1. SALAZOPYRINE [Suspect]
     Dosage: 4 TABLETS DAILY
     Route: 064
  2. SALAZOPYRINE [Suspect]
     Indication: COLITIS ULCERATIVE
     Dosage: 6 TABLETS DAILY
     Route: 064

REACTIONS (2)
  - SPINA BIFIDA [None]
  - DRUG EXPOSURE DURING PREGNANCY [None]
